FAERS Safety Report 4764794-8 (Version None)
Quarter: 2005Q3

REPORT INFORMATION
  Report Type: 
  Country: None (occurrence: None)
  Receive Date: 20050909
  Receipt Date: 20050704
  Transmission Date: 20060218
  Serious: Yes (Hospitalization, Other)
  Sender: FDA-Public Use
  Company Number: PHNU2005DE02449

PATIENT
  Age: 57 Year
  Sex: Female

DRUGS (4)
  1. ZOMETA [Suspect]
     Indication: METASTASES TO BONE
     Dosage: 4 MG, UNK
     Route: 042
     Dates: start: 20030101, end: 20040701
  2. JODID [Concomitant]
     Indication: THYROID DISORDER
     Dosage: UNK, UNK
     Route: 048
  3. CYCLOPHOSPHAMIDE + 5-FU + METHOTREXATE [Concomitant]
     Route: 065
     Dates: start: 20010401, end: 20010801
  4. RADIOTHERAPY [Concomitant]
     Indication: METASTASES TO BONE
     Route: 061
     Dates: start: 20010101, end: 20010201

REACTIONS (3)
  - ASEPTIC NECROSIS BONE [None]
  - OSTEOMYELITIS [None]
  - PURULENT DISCHARGE [None]
